FAERS Safety Report 7117487-6 (Version None)
Quarter: 2010Q4

REPORT INFORMATION
  Report Type: 
  Country: None (occurrence: None)
  Receive Date: 20101122
  Receipt Date: 20101116
  Transmission Date: 20110411
  Serious: Yes (Other)
  Sender: FDA-Public Use
  Company Number: US-PFIZER INC-2010150016

PATIENT
  Sex: Female

DRUGS (5)
  1. GEODON [Suspect]
     Indication: BIPOLAR DISORDER
     Dosage: 60 MG, 2X/DAY
     Route: 048
     Dates: start: 20090101
  2. SEROQUEL [Concomitant]
     Dosage: 75 MG, 1X/DAY
  3. DIVALPROEX SODIUM [Concomitant]
     Dosage: (1000MG AT AM; 1500MG AT HS) 2X/DAY
  4. ZYPREXA [Concomitant]
     Dosage: 10 MG, 1X/DAY
  5. TRAZODONE [Concomitant]
     Dosage: 100 MG, 1X/DAY

REACTIONS (8)
  - BLOOD UREA INCREASED [None]
  - GRANULOCYTE COUNT DECREASED [None]
  - LETHARGY [None]
  - LYMPHOCYTE COUNT INCREASED [None]
  - MALAISE [None]
  - MEAN CELL HAEMOGLOBIN INCREASED [None]
  - MEAN CELL VOLUME INCREASED [None]
  - RED BLOOD CELL COUNT DECREASED [None]
